FAERS Safety Report 5274724-0 (Version None)
Quarter: 2007Q1

REPORT INFORMATION
  Report Type: 
  Country: None (occurrence: None)
  Receive Date: 20070320
  Receipt Date: 20070313
  Transmission Date: 20070707
  Serious: Yes (Death, Hospitalization)
  Sender: FDA-Public Use
  Company Number: 163-21880-07030908

PATIENT
  Age: 72 Year
  Sex: Male

DRUGS (10)
  1. REVLIMID [Suspect]
     Indication: MULTIPLE MYELOMA
     Dosage: 10 MG, 1 IN 1 D, ORAL
     Route: 048
     Dates: start: 20060410
  2. ZOLOFT [Concomitant]
  3. PLAVIX [Concomitant]
  4. ASPIRIN [Concomitant]
  5. NORVASC [Concomitant]
  6. COUMADIN [Concomitant]
  7. MIDODRINE HYDROCHLORIDE [Concomitant]
  8. FLUDROCORTISONE ACETATE [Concomitant]
  9. PINDOLOL [Concomitant]
  10. TIZANIDINE HCL [Concomitant]

REACTIONS (6)
  - ANGIOPATHY [None]
  - CARDIO-RESPIRATORY ARREST [None]
  - CEREBRAL ATROPHY [None]
  - DEMENTIA ALZHEIMER'S TYPE [None]
  - ELECTROENCEPHALOGRAM ABNORMAL [None]
  - NUCLEAR MAGNETIC RESONANCE IMAGING BRAIN ABNORMAL [None]
